FAERS Safety Report 5693075-3 (Version None)
Quarter: 2008Q2

REPORT INFORMATION
  Report Type: 
  Country: None (occurrence: None)
  Receive Date: 20080402
  Receipt Date: 20080402
  Transmission Date: 20081010
  Serious: Yes (Hospitalization)
  Sender: FDA-Public Use
  Company Number: None

PATIENT
  Sex: Male
  Weight: 91.1 kg

DRUGS (2)
  1. INTRON A [Suspect]
     Dosage: 129 MILLION IU
  2. AVAPRO [Concomitant]

REACTIONS (6)
  - BACK PAIN [None]
  - DIZZINESS [None]
  - FLANK PAIN [None]
  - HYPOTENSION [None]
  - NECK PAIN [None]
  - PALLOR [None]
